FAERS Safety Report 24165138 (Version 2)
Quarter: 2024Q3

REPORT INFORMATION
  Report Type: Report from Study
  Country: CA (occurrence: CA)
  Receive Date: 20240802
  Receipt Date: 20240830
  Transmission Date: 20241016
  Serious: Yes (Death, Hospitalization, Other)
  Sender: ABBVIE
  Company Number: CA-ABBVIE-5862923

PATIENT
  Age: 70 Year
  Sex: Male

DRUGS (1)
  1. LINACLOTIDE [Suspect]
     Active Substance: LINACLOTIDE
     Indication: Constipation
     Route: 048

REACTIONS (3)
  - Cardiac failure congestive [Fatal]
  - Sepsis [Fatal]
  - Hospitalisation [Fatal]

NARRATIVE: CASE EVENT DATE: 20240516
